FAERS Safety Report 13678659 (Version 6)
Quarter: 2019Q2

REPORT INFORMATION
  Report Type: Spontaneous
  Country: US (occurrence: US)
  Receive Date: 20170622
  Receipt Date: 20190510
  Transmission Date: 20190711
  Serious: Yes (Other)
  Sender: FDA-Public Use
  Company Number: US-SA-2016SA182924

PATIENT
  Age: 11 Year
  Sex: Female

DRUGS (2)
  1. CEREZYME [Suspect]
     Active Substance: IMIGLUCERASE
     Indication: GAUCHER^S DISEASE
     Dosage: 3200 DF,QOW
     Route: 041
     Dates: start: 20110412, end: 20160915
  2. CEREZYME [Suspect]
     Active Substance: IMIGLUCERASE
     Dosage: 4400 U, QOW
     Route: 041

REACTIONS (3)
  - Catheter site pain [Recovered/Resolved]
  - Product dose omission [Unknown]
  - Device occlusion [Unknown]

NARRATIVE: CASE EVENT DATE: 20160915
